FAERS Safety Report 5925063-3 (Version None)
Quarter: 2008Q4

REPORT INFORMATION
  Report Type: 
  Country: None (occurrence: None)
  Receive Date: 20081021
  Receipt Date: 20081010
  Transmission Date: 20090506
  Serious: Yes (Death)
  Sender: FDA-Public Use
  Company Number: AT-JNJFOC-20081002260

PATIENT
  Sex: Female
  Weight: 125 kg

DRUGS (2)
  1. TOPAMAX [Suspect]
     Indication: POISONING
     Route: 048
  2. CITALOPRAM HYDROBROMIDE [Suspect]
     Indication: POISONING
     Route: 048

REACTIONS (2)
  - COMPLETED SUICIDE [None]
  - INTENTIONAL OVERDOSE [None]
